FAERS Safety Report 15633054 (Version 1)
Quarter: 2018Q4

REPORT INFORMATION
  Report Type: Spontaneous
  Country: CA (occurrence: CA)
  Receive Date: 20181119
  Receipt Date: 20181119
  Transmission Date: 20190205
  Serious: Yes (Hospitalization)
  Sender: FDA-Public Use
  Company Number: CA-PFIZER INC-2017523957

PATIENT
  Age: 69 Year
  Sex: Female

DRUGS (7)
  1. METFORMIN [Concomitant]
     Active Substance: METFORMIN HYDROCHLORIDE
     Dosage: 500 MG, UNK
  2. CANDESARTAN /01349502/ [Concomitant]
     Active Substance: CANDESARTAN
     Dosage: 32 MG, UNK
  3. IBRANCE [Suspect]
     Active Substance: PALBOCICLIB
     Dosage: 75 MG, CYCLIC (21 DAYS ON, 7 DAYS OFF)
     Route: 048
  4. IBRANCE [Suspect]
     Active Substance: PALBOCICLIB
     Dosage: 100 MG, CYCLIC 21 DAYS ON, 7 DAYS OFF
  5. LETROZOLE. [Concomitant]
     Active Substance: LETROZOLE
     Dosage: UNK
  6. LIPITOR [Concomitant]
     Active Substance: ATORVASTATIN CALCIUM
     Dosage: 20 MG, UNK
  7. IBRANCE [Suspect]
     Active Substance: PALBOCICLIB
     Indication: BREAST CANCER METASTATIC
     Dosage: 125 MG, 21 DAYS ON, 7 DAYS OFF
     Dates: start: 20170627

REACTIONS (6)
  - Neoplasm progression [Unknown]
  - Blood test abnormal [Unknown]
  - Malaise [Unknown]
  - Hypercalcaemia [Unknown]
  - Bone pain [Unknown]
  - Liver disorder [Unknown]

NARRATIVE: CASE EVENT DATE: 20171205
